FAERS Safety Report 6709193-4 (Version None)
Quarter: 2010Q2

REPORT INFORMATION
  Report Type: 
  Country: None (occurrence: None)
  Receive Date: 20100503
  Receipt Date: 20100503
  Transmission Date: 20101027
  Serious: Yes (Life-Threatening, Hospitalization)
  Sender: FDA-Public Use
  Company Number: None

PATIENT
  Age: 32 Year
  Sex: Male
  Weight: 75.2971 kg

DRUGS (1)
  1. CLOZAPINE [Suspect]
     Indication: DEPRESSION
     Dosage: 100MG AM, 250MG HS PO
     Route: 048
     Dates: start: 20100406, end: 20100420

REACTIONS (5)
  - NAUSEA [None]
  - PYREXIA [None]
  - RESPIRATORY FAILURE [None]
  - SHOCK [None]
  - TACHYCARDIA [None]
